FAERS Safety Report 8285960-3 (Version None)
Quarter: 2012Q2

REPORT INFORMATION
  Report Type: 
  Country: None (occurrence: None)
  Receive Date: 20120415
  Receipt Date: 20120403
  Transmission Date: 20120825
  Serious: Yes (Hospitalization, Other)
  Sender: FDA-Public Use
  Company Number: FR-BRISTOL-MYERS SQUIBB COMPANY-16504680

PATIENT
  Age: 41 Year
  Sex: Male

DRUGS (4)
  1. ABILIFY [Suspect]
     Route: 048
  2. LEPTICUR [Suspect]
     Route: 048
  3. PROPRANOLOL [Suspect]
     Route: 048
  4. VALIUM [Suspect]
     Dosage: VALIUM ROCHE
     Route: 048

REACTIONS (3)
  - DEEP VEIN THROMBOSIS [None]
  - METHAEMOGLOBINAEMIA [None]
  - PULMONARY EMBOLISM [None]
